FAERS Safety Report 8217762-8 (Version None)
Quarter: 2012Q1

REPORT INFORMATION
  Report Type: 
  Country: None (occurrence: None)
  Receive Date: 20120319
  Receipt Date: 20120308
  Transmission Date: 20120608
  Serious: No
  Sender: FDA-Public Use
  Company Number: FI-JNJFOC-20120304965

PATIENT
  Sex: Female

DRUGS (2)
  1. DURAGESIC-100 [Suspect]
     Indication: PAIN MANAGEMENT
     Route: 062
  2. OXYCODONE HCL [Concomitant]
     Route: 065

REACTIONS (2)
  - INAPPROPRIATE SCHEDULE OF DRUG ADMINISTRATION [None]
  - PRODUCT QUALITY ISSUE [None]
